FAERS Safety Report 11950519 (Version 1)
Quarter: 2016Q1

REPORT INFORMATION
  Report Type: Spontaneous
  Country: US (occurrence: None)
  Receive Date: 20160121
  Receipt Date: 20160121
  Transmission Date: 20160526
  Serious: No
  Sender: FDA-Public Use
  Company Number: None

PATIENT
  Age: 53 Year
  Sex: Male
  Weight: 90.72 kg

DRUGS (2)
  1. PRILOSEC OTC [Concomitant]
     Active Substance: OMEPRAZOLE MAGNESIUM
  2. XELJANZ [Suspect]
     Active Substance: TOFACITINIB CITRATE
     Indication: RHEUMATOID ARTHRITIS
     Dosage: 1 TWICE DAILY
     Route: 048
     Dates: start: 20160115, end: 20160115

REACTIONS (4)
  - Balance disorder [None]
  - Malaise [None]
  - Vomiting [None]
  - Vision blurred [None]

NARRATIVE: CASE EVENT DATE: 20160115
